FAERS Safety Report 21711337 (Version 2)
Quarter: 2023Q2

REPORT INFORMATION
  Report Type: Spontaneous
  Country: NO (occurrence: NO)
  Receive Date: 20221212
  Receipt Date: 20230505
  Transmission Date: 20230722
  Serious: Yes (Death)
  Sender: FDA-Public Use
  Company Number: NO-002147023-NVSC2022NO286891

PATIENT
  Age: 6 Year
  Sex: Female

DRUGS (1)
  1. DABRAFENIB [Suspect]
     Active Substance: DABRAFENIB
     Indication: Astrocytoma
     Dosage: UNK (ORAL SUSPENSION) (30 MG + 40 MG UNTILL CHICKEN POX))
     Route: 048
     Dates: start: 201712, end: 20221012

REACTIONS (1)
  - Lung disorder [Fatal]

NARRATIVE: CASE EVENT DATE: 20221007
